FAERS Safety Report 4416684-8 (Version None)
Quarter: 2004Q2

REPORT INFORMATION
  Report Type: 
  Country: None (occurrence: None)
  Receive Date: 20040630
  Receipt Date: 20040420
  Transmission Date: 20050107
  Serious: Yes (Hospitalization)
  Sender: FDA-Public Use
  Company Number: 04P-163-0258113-00

PATIENT
  Age: 74 Year
  Sex: Female

DRUGS (6)
  1. HUMIRA [Suspect]
     Indication: RHEUMATOID ARTHRITIS
     Dosage: 40 MG 1 IN 2 WK SUBCUTANEOUS
     Route: 058
  2. LEVOTHYROXINE SODIUM [Concomitant]
  3. ESOMEPRAZOLE [Concomitant]
  4. LEFLUNOMIDE [Concomitant]
  5. FLUNISOLIDE [Concomitant]
  6. METOPROLOL TARTRATE [Concomitant]

REACTIONS (1)
  - PNEUMONIA MYCOPLASMAL [None]
